FAERS Safety Report 8374196-3 (Version None)
Quarter: 2012Q2

REPORT INFORMATION
  Report Type: 
  Country: None (occurrence: None)
  Receive Date: 20120521
  Receipt Date: 20120515
  Transmission Date: 20120825
  Serious: Yes (Hospitalization, Disabling)
  Sender: FDA-Public Use
  Company Number: US-MERCK-1112USA00791

PATIENT
  Age: 83 Year
  Sex: Female
  Weight: 51 kg

DRUGS (4)
  1. FOSAMAX [Suspect]
     Indication: OSTEOPOROSIS
     Route: 048
     Dates: start: 19970101, end: 20080101
  2. VITAMINS (UNSPECIFIED) [Concomitant]
     Route: 048
     Dates: start: 19800101
  3. FOSAMAX [Suspect]
     Indication: OSTEOPENIA
     Route: 048
     Dates: start: 19970101, end: 20080101
  4. ALENDRONATE SODIUM [Suspect]
     Route: 048
     Dates: start: 20080228, end: 20090101

REACTIONS (11)
  - INTERVERTEBRAL DISC DISORDER [None]
  - OSTEOARTHRITIS [None]
  - LIGAMENT SPRAIN [None]
  - BLOOD PRESSURE INCREASED [None]
  - FEMUR FRACTURE [None]
  - INTERVERTEBRAL DISC DISPLACEMENT [None]
  - ARTHRALGIA [None]
  - LUMBAR SPINAL STENOSIS [None]
  - FALL [None]
  - ANXIETY [None]
  - EXOSTOSIS [None]
